FAERS Safety Report 8850846 (Version 3)
Quarter: 2012Q4

REPORT INFORMATION
  Report Type: 
  Country: US (occurrence: US)
  Receive Date: 20121019
  Receipt Date: 20121127
  Transmission Date: 20130627
  Serious: No
  Sender: FDA-Public Use
  Company Number: US-PFIZER INC-2012260610

PATIENT

DRUGS (3)
  1. LYRICA [Suspect]
     Dosage: 150 mg. in the morning and 150 mg. at night
  2. LYRICA [Suspect]
     Dosage: dropping 25 mg. every two weeks; dropped another 25 mg every time
  3. LYRICA [Suspect]
     Dosage: UNK

REACTIONS (7)
  - Headache [Unknown]
  - Neck pain [Unknown]
  - Nausea [Unknown]
  - Anxiety [Unknown]
  - Depression [Unknown]
  - Weight decreased [Unknown]
  - Post gastric surgery syndrome [Unknown]
